FAERS Safety Report 5347096-0 (Version None)
Quarter: 2007Q2

REPORT INFORMATION
  Report Type: 
  Country: None (occurrence: None)
  Receive Date: 20070604
  Receipt Date: 20070521
  Transmission Date: 20071010
  Serious: Yes (Other)
  Sender: FDA-Public Use
  Company Number: 2007SP010056

PATIENT
  Age: 65 Year
  Sex: Female

DRUGS (5)
  1. CLARITIN [Suspect]
     Indication: DRUG USE FOR UNKNOWN INDICATION
     Dosage: 1 DF; QD; PO
     Route: 048
     Dates: start: 20070515
  2. CITALOPRAM HYDROBROMIDE [Suspect]
     Indication: DRUG USE FOR UNKNOWN INDICATION
  3. WELLBUTRIN [Suspect]
     Indication: DRUG USE FOR UNKNOWN INDICATION
  4. DETROL [Suspect]
     Indication: DRUG USE FOR UNKNOWN INDICATION
  5. LIPITOR [Suspect]
     Indication: DRUG USE FOR UNKNOWN INDICATION

REACTIONS (4)
  - HYPERSENSITIVITY [None]
  - LOSS OF CONSCIOUSNESS [None]
  - RASH [None]
  - ROAD TRAFFIC ACCIDENT [None]
